FAERS Safety Report 12950013 (Version 2)
Quarter: 2016Q4

REPORT INFORMATION
  Report Type: Report from Study
  Country: US (occurrence: US)
  Receive Date: 20161117
  Receipt Date: 20161128
  Transmission Date: 20170207
  Serious: Yes (Hospitalization)
  Sender: FDA-Public Use
  Company Number: US-EISAI MEDICAL RESEARCH-EC-2016-022236

PATIENT
  Age: 43 Year
  Sex: Female

DRUGS (1)
  1. ERIBULIN [Suspect]
     Active Substance: ERIBULIN
     Indication: SQUAMOUS CELL CARCINOMA OF THE CERVIX
     Route: 041
     Dates: start: 20160929, end: 20161026

REACTIONS (3)
  - Pelvic venous thrombosis [Recovering/Resolving]
  - Cerebral infarction [Recovering/Resolving]
  - Anaemia [Not Recovered/Not Resolved]

NARRATIVE: CASE EVENT DATE: 20161106
